FAERS Safety Report 20629552 (Version 1)
Quarter: 2022Q1

REPORT INFORMATION
  Report Type: Spontaneous
  Country: DE (occurrence: DE)
  Receive Date: 20220323
  Receipt Date: 20220323
  Transmission Date: 20220424
  Serious: Yes (Other)
  Sender: FDA-Public Use
  Company Number: DE-EMBRYOTOX-202101666

PATIENT
  Sex: Female
  Weight: 52 kg

DRUGS (5)
  1. CITALOPRAM HYDROBROMIDE [Suspect]
     Active Substance: CITALOPRAM HYDROBROMIDE
     Indication: Depression
     Dosage: 20 MG
     Route: 048
     Dates: start: 20201002, end: 20210608
  2. HOMEOPATHICS [Concomitant]
     Active Substance: HOMEOPATHICS
     Indication: Sleep disorder
     Dosage: 18.6. - 35.4. GESTATIONAL WEEK
     Route: 048
  3. BOOSTRIX [Concomitant]
     Active Substance: TETANUS TOXOID, REDUCED DIPHTHERIA TOXOID AND ACELLULAR PERTUSSIS VACCINE, ADSORBED ANTIGENS
     Indication: Immunisation
     Dosage: 30.3. - 30.3. GESTATIONAL WEEK (3 TRIMESTER)
     Route: 030
     Dates: start: 20210503, end: 20210503
  4. CLOTRIMAZOLE [Concomitant]
     Active Substance: CLOTRIMAZOLE
     Indication: Vulvovaginal mycotic infection
     Dosage: UNKNOWN TRIMESTER
     Route: 067
  5. FOLIC ACID [Concomitant]
     Active Substance: FOLIC ACID
     Indication: Prophylaxis of neural tube defect
     Dosage: 0. - 35.4. GESTATIONAL WEEK  (1 TRIMESTER)
     Route: 048
     Dates: start: 20201002, end: 20210608

REACTIONS (2)
  - Pregnancy [Unknown]
  - Premature labour [Unknown]

NARRATIVE: CASE EVENT DATE: 20210601
